FAERS Safety Report 18860167 (Version 1)
Quarter: 2021Q1

REPORT INFORMATION
  Report Type: Spontaneous
  Country: IN (occurrence: IN)
  Receive Date: 20210208
  Receipt Date: 20210208
  Transmission Date: 20210420
  Serious: Yes (Other)
  Sender: FDA-Public Use
  Company Number: IN-EPICPHARMA-IN-2021EPCLIT00066

PATIENT
  Age: 42 Year
  Sex: Male

DRUGS (7)
  1. PREDNISOLONE. [Interacting]
     Active Substance: PREDNISOLONE
     Indication: FIXED ERUPTION
     Route: 065
  2. CALAMINE [Interacting]
     Active Substance: CALAMINE\FERRIC OXIDE RED\ZINC OXIDE
     Indication: FIXED ERUPTION
     Route: 065
  3. METFORMIN [Suspect]
     Active Substance: METFORMIN HYDROCHLORIDE
     Indication: DIABETES MELLITUS
     Dosage: 1500?2500MG DAILY
     Route: 048
  4. COTRIMOXAZOLE [Suspect]
     Active Substance: SULFAMETHOXAZOLE\TRIMETHOPRIM
     Indication: RESPIRATORY TRACT INFECTION
     Dosage: 400/80 MG
     Route: 065
  5. LEVOFLOXACIN. [Suspect]
     Active Substance: LEVOFLOXACIN
     Indication: RESPIRATORY TRACT INFECTION
     Route: 048
  6. LEVOCETIRIZINE [Interacting]
     Active Substance: LEVOCETIRIZINE
     Indication: FIXED ERUPTION
     Route: 065
  7. HYDROXYCHLOROQUINE [Suspect]
     Active Substance: HYDROXYCHLOROQUINE
     Indication: RESPIRATORY TRACT INFECTION
     Route: 048

REACTIONS (2)
  - Fixed eruption [Recovering/Resolving]
  - Drug interaction [Unknown]
